FAERS Safety Report 5875461-1 (Version None)
Quarter: 2008Q3

REPORT INFORMATION
  Report Type: 
  Country: None (occurrence: None)
  Receive Date: 20080909
  Receipt Date: 20080828
  Transmission Date: 20090109
  Serious: Yes (Death, Hospitalization)
  Sender: FDA-Public Use
  Company Number: US-WYE-H04003808

PATIENT
  Sex: Female

DRUGS (4)
  1. EFFEXOR [Suspect]
  2. KLONOPIN [Suspect]
  3. METHADONE HCL [Suspect]
  4. SEROQUEL [Suspect]

REACTIONS (4)
  - CARDIO-RESPIRATORY ARREST [None]
  - COMPLETED SUICIDE [None]
  - INTENTIONAL OVERDOSE [None]
  - SUICIDAL IDEATION [None]
